FAERS Safety Report 7487188-3 (Version None)
Quarter: 2011Q2

REPORT INFORMATION
  Report Type: 
  Country: None (occurrence: None)
  Receive Date: 20110518
  Receipt Date: 20110414
  Transmission Date: 20111010
  Serious: Yes (Other)
  Sender: FDA-Public Use
  Company Number: TW-BAYER-2011-033176

PATIENT
  Age: 54 Year
  Sex: Female

DRUGS (3)
  1. MIRENA [Suspect]
     Indication: CONTRACEPTION
     Dosage: 20 MCG/24HR, CONT
     Route: 015
     Dates: start: 20080101, end: 20110301
  2. CYCLOSPORINE [Concomitant]
     Indication: KIDNEY TRANSPLANT REJECTION
  3. PREDNISOLONE [Concomitant]
     Indication: KIDNEY TRANSPLANT REJECTION

REACTIONS (3)
  - GENITAL HAEMORRHAGE [None]
  - ENDOMETRIAL CANCER [None]
  - UTERINE HAEMORRHAGE [None]
